FAERS Safety Report 24699215 (Version 1)
Quarter: 2024Q4

REPORT INFORMATION
  Report Type: Spontaneous
  Country: AU (occurrence: AU)
  Receive Date: 20241205
  Receipt Date: 20241205
  Transmission Date: 20250115
  Serious: Yes (Other)
  Sender: SUNOVION
  Company Number: AU-RICHTER-2024-GR-012991

PATIENT

DRUGS (1)
  1. ESTRADIOL\NORETHINDRONE ACETATE\RELUGOLIX [Suspect]
     Active Substance: ESTRADIOL\NORETHINDRONE ACETATE\RELUGOLIX
     Indication: Uterine leiomyoma
     Route: 065
     Dates: start: 20241029, end: 20241029

REACTIONS (12)
  - Bone pain [Unknown]
  - Arthralgia [Unknown]
  - Fatigue [Unknown]
  - Discomfort [Unknown]
  - Dyspnoea [Unknown]
  - Hot flush [Recovered/Resolved]
  - Pyrexia [Unknown]
  - Abdominal pain [Unknown]
  - Heart rate increased [Unknown]
  - Nausea [Recovered/Resolved]
  - Decreased appetite [Unknown]
  - Headache [Unknown]
